FAERS Safety Report 11855099 (Version 1)
Quarter: 2015Q4

REPORT INFORMATION
  Report Type: Spontaneous
  Country: US (occurrence: None)
  Receive Date: 20151218
  Receipt Date: 20151218
  Transmission Date: 20160305
  Serious: No
  Sender: FDA-Public Use
  Company Number: None

PATIENT
  Age: 53 Year
  Sex: Male

DRUGS (1)
  1. MORPHINE IV [Suspect]
     Active Substance: MORPHINE

REACTIONS (24)
  - Pain of skin [None]
  - Discomfort [None]
  - Immune system disorder [None]
  - Nerve injury [None]
  - Gastrointestinal disorder [None]
  - Hypoaesthesia [None]
  - Oesophageal achalasia [None]
  - Spinal cord disorder [None]
  - Lung disorder [None]
  - Liver disorder [None]
  - Pain [None]
  - Abasia [None]
  - Pruritus [None]
  - Incorrect dose administered [None]
  - Skin exfoliation [None]
  - Constipation [None]
  - Pain in extremity [None]
  - Arthralgia [None]
  - Rash macular [None]
  - Condition aggravated [None]
  - Renal disorder [None]
  - Dyspnoea [None]
  - Diarrhoea [None]
  - Spleen disorder [None]

NARRATIVE: CASE EVENT DATE: 201405
